FAERS Safety Report 9992931 (Version 2)
Quarter: 2014Q1

REPORT INFORMATION
  Report Type: Report from Study
  Country: US (occurrence: US)
  Receive Date: 20140310
  Receipt Date: 20140310
  Transmission Date: 20141002
  Serious: Yes (Other)
  Sender: FDA-Public Use
  Company Number: US-ABBVIE-13P-163-1071487-00

PATIENT
  Age: 37 Year
  Sex: Female

DRUGS (9)
  1. LUPRON DEPOT [Suspect]
     Indication: ENDOMETRIOSIS
     Dates: start: 20130214
  2. IMITREX [Concomitant]
     Indication: MIGRAINE
  3. TOPAMAX [Concomitant]
     Indication: CONVULSION
  4. DILANTIN [Concomitant]
     Indication: CONVULSION
  5. KLONOPIN [Concomitant]
     Indication: CONVULSION
     Dosage: AT BEDTIME
  6. MULTIVITAMINS [Concomitant]
     Indication: PRODUCT USED FOR UNKNOWN INDICATION
  7. CALCIUM [Concomitant]
     Indication: PRODUCT USED FOR UNKNOWN INDICATION
  8. BENADRYL [Concomitant]
     Indication: SEASONAL ALLERGY
  9. NORETHINDRONE ACETATE [Concomitant]
     Indication: PRODUCT USED FOR UNKNOWN INDICATION
     Route: 048

REACTIONS (5)
  - Pain [Not Recovered/Not Resolved]
  - Endometriosis [Not Recovered/Not Resolved]
  - Fatigue [Unknown]
  - Seborrhoea [Unknown]
  - Acne [Unknown]
